FAERS Safety Report 4401036-7 (Version None)
Quarter: 2004Q3

REPORT INFORMATION
  Report Type: 
  Country: None (occurrence: None)
  Receive Date: 20040907
  Receipt Date: 20031001
  Transmission Date: 20050211
  Serious: Yes (Life-Threatening, Other)
  Sender: FDA-Public Use
  Company Number: US-BRISTOL-MYERS SQUIBB COMPANY-12399408

PATIENT
  Age: 81 Year
  Sex: Female
  Weight: 60 kg

DRUGS (8)
  1. COUMADIN [Suspect]
     Indication: ATRIAL FIBRILLATION
     Dosage: INTERRUPTED FROM 08-SEP-2003 THROUGH 29-SEP-2003. RESTARTED AT 1.25 MG FOR FIVE DAYS PER WEEK.
     Route: 048
     Dates: start: 20011008
  2. ESTRACE [Concomitant]
  3. PROGESTERONE [Concomitant]
  4. HYDROCHLOROTHIAZIDE [Concomitant]
  5. ATENOLOL [Concomitant]
  6. LANOXIN [Concomitant]
  7. VERAPAMIL [Concomitant]
  8. LIPITOR [Concomitant]

REACTIONS (5)
  - BLOOD IMMUNOGLOBULIN G INCREASED [None]
  - BLOOD URINE [None]
  - HAEMATOMA [None]
  - INTERNATIONAL NORMALISED RATIO ABNORMAL [None]
  - MEDICATION ERROR [None]
